FAERS Safety Report 8144476-5 (Version None)
Quarter: 2012Q1

REPORT INFORMATION
  Report Type: 
  Country: None (occurrence: None)
  Receive Date: 20120217
  Receipt Date: 20120206
  Transmission Date: 20120608
  Serious: Yes (Death)
  Sender: FDA-Public Use
  Company Number: US-ROCHE-1039690

PATIENT
  Age: 75 Year
  Sex: Male

DRUGS (6)
  1. CYCLOPHOSPHAMIDE [Suspect]
     Indication: CHRONIC LYMPHOCYTIC LEUKAEMIA
     Dosage: OVER 1 HR ON DAYS 2-4, 28-DAY CYCLE
     Route: 041
  2. SULFAMETHOXAZOLE AND TRIMETHOPRIM [Concomitant]
     Indication: PROPHYLAXIS
  3. FLUDARABINE PHOSPHATE [Suspect]
     Indication: CHRONIC LYMPHOCYTIC LEUKAEMIA
     Dosage: OVER 30 MIN ON DAY 2-4, 28-DAY CYCLE
     Route: 041
  4. MABTHERA [Suspect]
     Indication: CHRONIC LYMPHOCYTIC LEUKAEMIA
     Dosage: DAY 2, 28-DAY CYCLE.
     Route: 041
  5. EL625 (P53 ANTISENSE OLIGONUCLEOTIDE) [Suspect]
     Indication: CHRONIC LYMPHOCYTIC LEUKAEMIA
     Route: 041
  6. ALLOPURINOL [Concomitant]
     Indication: PROPHYLAXIS

REACTIONS (2)
  - CYSTITIS HAEMORRHAGIC [None]
  - POST PROCEDURAL COMPLICATION [None]
